FAERS Safety Report 9763558 (Version 2)
Quarter: 2014Q1

REPORT INFORMATION
  Report Type: Spontaneous
  Country: CA (occurrence: CA)
  Receive Date: 20131216
  Receipt Date: 20140213
  Transmission Date: 20141002
  Serious: Yes (Hospitalization)
  Sender: FDA-Public Use
  Company Number: CHPA2013CA018435

PATIENT
  Age: 65 Year
  Sex: Female

DRUGS (16)
  1. HABITROL [Suspect]
     Indication: SMOKING CESSATION THERAPY
     Dosage: 21 MG, ONCE/SINGLE
     Route: 062
  2. PLAVIX [Concomitant]
     Indication: VASCULAR OCCLUSION
     Dosage: UNK, QD
     Dates: start: 20131129
  3. PLAVIX [Concomitant]
     Indication: BLOOD PRESSURE
  4. BABY ASPIRIN [Concomitant]
     Indication: VENOUS OCCLUSION
     Dosage: UNK, QD
  5. BABY ASPIRIN [Concomitant]
     Indication: BLOOD PRESSURE
  6. GABAPENTINE [Concomitant]
     Dosage: UNK, QD
  7. FOLIC [Concomitant]
     Dosage: UNK, BIW
  8. DIATABS [Concomitant]
     Dosage: UNK, QW
  9. CORTISONE [Concomitant]
     Dosage: 5 MG, UNK
  10. METOPROLOL [Concomitant]
     Dosage: UNK
     Dates: start: 201311
  11. PANTOLOC//PANTOPRAZOLE SODIUM SESQUIHYDRATE [Concomitant]
     Dosage: UNK
     Dates: start: 201311
  12. PMS CLOPIDOGREL [Concomitant]
     Dosage: UNK
     Dates: start: 201311
  13. CALCIUM [Concomitant]
     Dosage: UNK, QD
  14. ACTONEL [Concomitant]
     Indication: BONE DISORDER
     Dosage: UNK, BIW
  15. METHOTREXATE [Concomitant]
     Indication: RHEUMATOID ARTHRITIS
     Dosage: 20 MG, QMO
  16. AMLODIPINE [Concomitant]
     Indication: PRODUCT USED FOR UNKNOWN INDICATION
     Dosage: UNK
     Dates: start: 201311

REACTIONS (4)
  - Myocardial infarction [Recovered/Resolved]
  - Vascular occlusion [Recovered/Resolved]
  - Contusion [Not Recovered/Not Resolved]
  - Concomitant disease aggravated [Not Recovered/Not Resolved]
